FAERS Safety Report 6491047-2 (Version None)
Quarter: 2009Q4

REPORT INFORMATION
  Report Type: 
  Country: None (occurrence: None)
  Receive Date: 20091125
  Receipt Date: 20090428
  Transmission Date: 20100525
  Serious: No
  Sender: FDA-Public Use
  Company Number: 2009BH007479

PATIENT
  Age: 82 Year
  Sex: Male

DRUGS (5)
  1. DIANEAL [Suspect]
     Indication: PERITONEAL DIALYSIS
     Dosage: 11 L;EVERY DAY; IP
     Route: 033
     Dates: start: 20090201
  2. DIANEAL [Suspect]
     Indication: PERITONEAL DIALYSIS
     Dosage: 1.5 L;EVERY DAY; IP
     Route: 033
     Dates: start: 20080811
  3. SORBITOL [Concomitant]
  4. OXYCONTIN [Concomitant]
  5. PERCOCET [Concomitant]

REACTIONS (2)
  - DIARRHOEA [None]
  - FLATULENCE [None]
